FAERS Safety Report 8230054-6 (Version None)
Quarter: 2012Q1

REPORT INFORMATION
  Report Type: 
  Country: None (occurrence: None)
  Receive Date: 20120323
  Receipt Date: 20120320
  Transmission Date: 20120608
  Serious: Yes (Hospitalization)
  Sender: FDA-Public Use
  Company Number: US-PFIZER INC-2012073676

PATIENT
  Sex: Female

DRUGS (1)
  1. CADUET [Suspect]
     Dosage: 5/40 MG

REACTIONS (2)
  - PANIC ATTACK [None]
  - CHEST PAIN [None]
